FAERS Safety Report 4641807-5 (Version None)
Quarter: 2005Q2

REPORT INFORMATION
  Report Type: 
  Country: None (occurrence: None)
  Receive Date: 20050421
  Receipt Date: 20050127
  Transmission Date: 20051028
  Serious: Yes (Death)
  Sender: FDA-Public Use
  Company Number: AU-MERCK-0501AUS00164

PATIENT
  Age: 66 Year
  Sex: Male
  Weight: 78 kg

DRUGS (6)
  1. VIOXX [Suspect]
     Indication: OSTEOARTHRITIS
     Route: 048
     Dates: start: 20030409, end: 20030701
  2. VIOXX [Suspect]
     Route: 048
     Dates: start: 20030319, end: 20030408
  3. VIOXX [Suspect]
     Indication: BACK PAIN
     Route: 048
     Dates: start: 20030409, end: 20030701
  4. VIOXX [Suspect]
     Route: 048
     Dates: start: 20030319, end: 20030408
  5. ESOMEPRAZOLE MAGNESIUM [Concomitant]
     Indication: GASTROOESOPHAGEAL REFLUX DISEASE
     Route: 048
     Dates: start: 20021014, end: 20030701
  6. ESOMEPRAZOLE MAGNESIUM [Concomitant]
     Indication: DUODENAL ULCER
     Route: 048
     Dates: start: 20021014, end: 20030701

REACTIONS (3)
  - CARDIAC ARREST [None]
  - CORONARY ARTERY OCCLUSION [None]
  - MYOCARDIAL INFARCTION [None]
